FAERS Safety Report 6010527-7 (Version None)
Quarter: 2008Q4

REPORT INFORMATION
  Report Type: 
  Country: None (occurrence: None)
  Receive Date: 20081218
  Receipt Date: 20081204
  Transmission Date: 20090506
  Serious: Yes (Other)
  Sender: FDA-Public Use
  Company Number: GB-ELI_LILLY_AND_COMPANY-GB200812002566

PATIENT
  Age: 54 Year
  Sex: Male

DRUGS (4)
  1. XIGRIS [Suspect]
     Indication: SEPSIS
     Dosage: 0.024 MG/KG, EVERY HOUR
     Route: 042
     Dates: start: 20081203
  2. ANTIBIOTICS [Concomitant]
     Dosage: UNK, UNKNOWN
     Route: 065
  3. ANABOLIC STEROIDS [Concomitant]
     Dosage: UNK, UNKNOWN
     Route: 065
  4. ALBUTEROL [Concomitant]
     Dosage: UNK, UNKNOWN
     Route: 065

REACTIONS (1)
  - INTERNATIONAL NORMALISED RATIO INCREASED [None]
